FAERS Safety Report 7458433-5 (Version None)
Quarter: 2011Q2

REPORT INFORMATION
  Report Type: 
  Country: None (occurrence: None)
  Receive Date: 20110504
  Receipt Date: 20110427
  Transmission Date: 20111010
  Serious: Yes (Other)
  Sender: FDA-Public Use
  Company Number: A0925631A

PATIENT
  Sex: Female
  Weight: 62 kg

DRUGS (1)
  1. SERETIDE [Suspect]
     Indication: ASTHMA
     Dosage: 1PUFF PER DAY
     Route: 055
     Dates: start: 20080101

REACTIONS (5)
  - LOSS OF LIBIDO [None]
  - ASTHENIA [None]
  - VISUAL ACUITY REDUCED [None]
  - HAIR DISORDER [None]
  - TACHYCARDIA [None]
